FAERS Safety Report 6434119-0 (Version None)
Quarter: 2009Q4

REPORT INFORMATION
  Report Type: 
  Country: None (occurrence: None)
  Receive Date: 20091110
  Receipt Date: 20090612
  Transmission Date: 20100525
  Serious: No
  Sender: FDA-Public Use
  Company Number: US-ASTRAZENECA-2009UW17502

PATIENT
  Age: 51 Year
  Sex: Male
  Weight: 98.4 kg

DRUGS (8)
  1. PRILOSEC OTC [Suspect]
     Indication: DYSPEPSIA
     Dosage: 1 TABLET, 1 /DAY FOR 11 DAYS
     Route: 048
     Dates: start: 20081102, end: 20081113
  2. HYDROCODONE [Concomitant]
     Indication: POSTOPERATIVE ANALGESIA
     Dosage: 500 MG, AS NEEDED
     Route: 048
  3. MELOXICAM [Concomitant]
     Indication: ARTHRALGIA
     Dosage: 15 MG, 1 /DAY
     Route: 048
  4. PROAIR HFA [Concomitant]
     Indication: ASTHMA
     Dosage: 8.5 MG, 1 /DAY
     Route: 048
  5. PROAIR HFA [Concomitant]
     Indication: DYSPNOEA
     Dosage: 8.5 MG, 1 /DAY
     Route: 048
  6. BACTRIM DS [Concomitant]
     Indication: ACNE
     Dosage: 1 TABLET, 2 /DAY
     Route: 048
  7. AMOXICILLIN [Concomitant]
     Dosage: 500 MG, UNK FREQ
     Route: 048
  8. HYDROCORTISONE [Concomitant]
     Dosage: UNKNOWN

REACTIONS (13)
  - ABDOMINAL DISTENSION [None]
  - ABDOMINAL PAIN UPPER [None]
  - BARRETT'S OESOPHAGUS [None]
  - DIARRHOEA [None]
  - DYSPEPSIA [None]
  - GASTRIC ULCER [None]
  - GASTRITIS [None]
  - GASTROINTESTINAL DISORDER [None]
  - GASTROINTESTINAL INFLAMMATION [None]
  - GASTROOESOPHAGITIS [None]
  - HIATUS HERNIA [None]
  - OESOPHAGITIS [None]
  - OVERGROWTH BACTERIAL [None]
